FAERS Safety Report 5121293-1 (Version None)
Quarter: 2006Q4

REPORT INFORMATION
  Report Type: 
  Country: None (occurrence: None)
  Receive Date: 20061002
  Receipt Date: 20060918
  Transmission Date: 20070319
  Serious: Yes (Hospitalization, Other)
  Sender: FDA-Public Use
  Company Number: 2006111840

PATIENT
  Age: 60 Year
  Sex: Female
  Weight: 82.5547 kg

DRUGS (7)
  1. ARTHROTEC [Suspect]
     Indication: ARTHRITIS
     Dosage: 75MG/200MCG; 75MG/200MCG (1 IN 1 D)
  2. COZAAR [Concomitant]
  3. ZOCOR [Concomitant]
  4. ACETAMINOPHEN [Concomitant]
  5. LEVOXYL [Concomitant]
  6. ALL OTHER THERAPEUTIC PRODUCTS [Concomitant]
  7. CLARINEX [Concomitant]

REACTIONS (7)
  - BLOOD PRESSURE ABNORMAL [None]
  - DIABETES MELLITUS [None]
  - DRUG INEFFECTIVE [None]
  - JOINT SWELLING [None]
  - KNEE ARTHROPLASTY [None]
  - LIMB OPERATION [None]
  - THYROID DISORDER [None]
